FAERS Safety Report 14359348 (Version 3)
Quarter: 2020Q2

REPORT INFORMATION
  Report Type: Spontaneous
  Country: US (occurrence: US)
  Receive Date: 20180105
  Receipt Date: 20200603
  Transmission Date: 20200713
  Serious: No
  Sender: FDA-Public Use
  Company Number: US-SA-2017SA155941

PATIENT

DRUGS (2)
  1. ZANTAC 150 (RANITIDINE HYDROCHLORIDE) [Suspect]
     Active Substance: RANITIDINE HYDROCHLORIDE
     Indication: DYSPEPSIA
     Dosage: 150 MG,BID
     Route: 048
  2. CALCIUM CITRATE/COLECALCIFEROL [Suspect]
     Active Substance: CALCIUM CITRATE\CHOLECALCIFEROL
     Indication: OSTEOPOROSIS
     Dosage: UNK UNK, UNK
     Route: 065

REACTIONS (2)
  - Dizziness [Unknown]
  - Drug ineffective [Unknown]
